FAERS Safety Report 12531446 (Version 1)
Quarter: 2016Q3

REPORT INFORMATION
  Report Type: Spontaneous
  Country: US (occurrence: US)
  Receive Date: 20160706
  Receipt Date: 20160706
  Transmission Date: 20161109
  Serious: No
  Sender: FDA-Public Use
  Company Number: US-MALLINCKRODT-T201601383

PATIENT
  Sex: Male
  Weight: 86 kg

DRUGS (11)
  1. FENTANYL TRANSDERMAL SYSTEM [Suspect]
     Active Substance: FENTANYL
     Indication: PAIN
     Dosage: 25MCG/HR Q48H
     Route: 062
     Dates: start: 2011
  2. ADVAIR HFA [Interacting]
     Active Substance: FLUTICASONE PROPIONATE\SALMETEROL XINAFOATE
  3. COUMADIN [Concomitant]
     Active Substance: WARFARIN SODIUM
  4. FENTANYL TRANSDERMAL SYSTEM [Interacting]
     Active Substance: FENTANYL
     Dosage: 75MCG/HR Q48H
     Route: 062
     Dates: start: 2016
  5. SPIRIVA [Interacting]
     Active Substance: TIOTROPIUM BROMIDE MONOHYDRATE
  6. OXYCODONE [Interacting]
     Active Substance: OXYCODONE
     Indication: PAIN
     Dosage: 2 TABLETS Q 4-6 HOURS (NOT TO EXCEED 7/DAY)
     Route: 048
     Dates: start: 2013
  7. FENTANYL TRANSDERMAL SYSTEM [Interacting]
     Active Substance: FENTANYL
     Dosage: 75MCG/HR Q48H
     Route: 062
  8. FENTANYL TRANSDERMAL SYSTEM [Interacting]
     Active Substance: FENTANYL
     Dosage: 100MCG/HR Q48H
     Route: 062
  9. FENTANYL TRANSDERMAL SYSTEM [Interacting]
     Active Substance: FENTANYL
     Indication: NERVE INJURY
     Dosage: 50MCG/HR Q48H
     Route: 062
  10. OXYCODONE [Interacting]
     Active Substance: OXYCODONE
     Indication: NERVE INJURY
  11. OXYCODONE [Interacting]
     Active Substance: OXYCODONE
     Indication: BREAKTHROUGH PAIN

REACTIONS (5)
  - Hyperhidrosis [Not Recovered/Not Resolved]
  - Product adhesion issue [Not Recovered/Not Resolved]
  - Insomnia [Not Recovered/Not Resolved]
  - Drug ineffective [Not Recovered/Not Resolved]
  - Dysgeusia [Not Recovered/Not Resolved]
